FAERS Safety Report 6493904-X (Version None)
Quarter: 2009Q4

REPORT INFORMATION
  Report Type: 
  Country: None (occurrence: None)
  Receive Date: 20091214
  Receipt Date: 20081120
  Transmission Date: 20100525
  Serious: No
  Sender: FDA-Public Use
  Company Number: US-BRISTOL-MYERS SQUIBB COMPANY-14414239

PATIENT
  Age: 20 Year
  Sex: Male
  Weight: 136 kg

DRUGS (5)
  1. ABILIFY [Suspect]
     Indication: SCHIZOPHRENIA
     Dosage: INITAILLY STARTED WITH 5 MG FROM 18NOV08 DOSE WAS INCREASED TO 10MG/DAY
     Dates: start: 20081001
  2. PRISTIQ [Concomitant]
  3. EFFEXOR [Concomitant]
  4. PREVACID [Concomitant]
  5. PRILOSEC [Concomitant]

REACTIONS (3)
  - DIARRHOEA [None]
  - OROPHARYNGEAL PAIN [None]
  - VOMITING [None]
